FAERS Safety Report 6425490-4 (Version None)
Quarter: 2009Q4

REPORT INFORMATION
  Report Type: 
  Country: None (occurrence: None)
  Receive Date: 20091103
  Receipt Date: 20091026
  Transmission Date: 20100525
  Serious: No
  Sender: FDA-Public Use
  Company Number: US-B.I. PHARMACEUTICALS,INC./RIDGEFIELD-2009-BP-12425BP

PATIENT
  Sex: Female

DRUGS (1)
  1. ZANTAC 75 [Suspect]
     Indication: ABDOMINAL DISCOMFORT
     Dosage: 75 MG
     Route: 048
     Dates: start: 20070101, end: 20070101

REACTIONS (1)
  - SOMNOLENCE [None]
